FAERS Safety Report 4505844-3 (Version None)
Quarter: 2004Q4

REPORT INFORMATION
  Report Type: 
  Country: None (occurrence: None)
  Receive Date: 20041025
  Receipt Date: 20040628
  Transmission Date: 20050328
  Serious: Yes (Other)
  Sender: FDA-Public Use
  Company Number: US-JNJFOC-20040304662

PATIENT
  Age: 71 Year
  Sex: Female

DRUGS (7)
  1. REMICADE [Suspect]
     Indication: RHEUMATOID ARTHRITIS
     Dosage: 5 MG/KG, INTRAVENOUS; SEE IMAGE
     Route: 042
     Dates: start: 20030101
  2. REMICADE [Suspect]
     Indication: RHEUMATOID ARTHRITIS
     Dosage: 5 MG/KG, INTRAVENOUS; SEE IMAGE
     Route: 042
     Dates: start: 20030301
  3. REMICADE [Suspect]
     Indication: RHEUMATOID ARTHRITIS
     Dosage: 5 MG/KG, INTRAVENOUS; SEE IMAGE
     Route: 042
     Dates: start: 20031201
  4. PREDNISONE [Concomitant]
  5. ARAVA [Concomitant]
  6. HYZAAR [Concomitant]
  7. ACTONEL [Concomitant]

REACTIONS (1)
  - VASCULITIC RASH [None]
